FAERS Safety Report 9390253 (Version 1)
Quarter: 2013Q3

REPORT INFORMATION
  Report Type: Spontaneous
  Country: FR (occurrence: FR)
  Receive Date: 20130708
  Receipt Date: 20130708
  Transmission Date: 20140515
  Serious: Yes (Hospitalization)
  Sender: FDA-Public Use
  Company Number: FR-ELI_LILLY_AND_COMPANY-FR201306008826

PATIENT
  Age: 60 Year
  Sex: Female

DRUGS (1)
  1. FORSTEO [Suspect]
     Dosage: UNK
     Dates: start: 201304

REACTIONS (1)
  - Abasia [Unknown]
